FAERS Safety Report 22532614 (Version 1)
Quarter: 2023Q2

REPORT INFORMATION
  Report Type: Spontaneous
  Country: DE (occurrence: DE)
  Receive Date: 20230607
  Receipt Date: 20230607
  Transmission Date: 20230722
  Serious: Yes (Other)
  Sender: FDA-Public Use
  Company Number: DE-ROCHE-2425495

PATIENT
  Sex: Male
  Weight: 92 kg

DRUGS (15)
  1. GEMCITABINE [Suspect]
     Active Substance: GEMCITABINE
     Indication: Diffuse large B-cell lymphoma
     Dosage: 4TH LINE TREATMENT, ACCORDING TO R-GDP REGIME, 1 CYCLE
     Route: 065
     Dates: start: 20190221, end: 201903
  2. DEXAMETHASONE [Suspect]
     Active Substance: DEXAMETHASONE
     Indication: Diffuse large B-cell lymphoma
     Dosage: 4TH LINE TREATMENT, ACCORDING TO R-GDP REGIME, 1 CYCLE
     Route: 065
     Dates: start: 20190221, end: 201903
  3. DEXAMETHASONE [Suspect]
     Active Substance: DEXAMETHASONE
     Dosage: 5TH LINE TREATMENT, TOGETHER WITH LENALIDOMID AND RITUXIMAB, 5 CYCLES
     Route: 065
     Dates: start: 201904, end: 201909
  4. CARBOPLATIN [Suspect]
     Active Substance: CARBOPLATIN
     Indication: Diffuse large B-cell lymphoma
     Dosage: 2ND LINE TREATMENT, ACCORDING TO R-ICE REGIME, 1 CYCLE
     Route: 065
     Dates: start: 201812, end: 201901
  5. LENALIDOMIDE [Suspect]
     Active Substance: LENALIDOMIDE
     Indication: Diffuse large B-cell lymphoma
     Dosage: 5TH LINE TREATMENT,  TOGETHER WITH RITUXIMAB AND DEXAMETHASONE, 5 CYCLES
     Route: 065
     Dates: start: 201904, end: 201909
  6. ETOPOSIDE [Suspect]
     Active Substance: ETOPOSIDE
     Indication: Diffuse large B-cell lymphoma
     Dosage: 2ND LINE TREATMENT, ACCORDING TO R-ICE REGIME, 1 CYCLE
     Route: 065
     Dates: start: 201812, end: 201901
  7. CISPLATIN [Suspect]
     Active Substance: CISPLATIN
     Indication: Diffuse large B-cell lymphoma
     Dosage: 4TH LINE TREATMENT, ACCORDING TO R-GDP REGIME, 1 CYCLE
     Route: 065
     Dates: start: 20190221, end: 201903
  8. MABTHERA [Suspect]
     Active Substance: RITUXIMAB
     Indication: Diffuse large B-cell lymphoma
     Dosage: 1ST LINE TREATMENT, ACCORDING TO R-CHOP REGIME, 6 CYCLES
     Route: 065
     Dates: start: 201803, end: 201807
  9. MABTHERA [Suspect]
     Active Substance: RITUXIMAB
     Dosage: 2ND LINE TREATMENT, ACCORDING TO R-ICE REGIME, 1 CYCLE
     Route: 065
     Dates: start: 201812, end: 201901
  10. MABTHERA [Suspect]
     Active Substance: RITUXIMAB
     Dosage: 3RD LINE TREATMENT, ACCORDING TO R-DHAP REGIME, 2 CYCLES
     Route: 065
     Dates: start: 20190111, end: 20190201
  11. MABTHERA [Suspect]
     Active Substance: RITUXIMAB
     Dosage: 4TH LINE TREATMENT, ACCORDING TO R-GDP REGIME, 1 CYCLE
     Route: 065
     Dates: start: 20190221, end: 201903
  12. MABTHERA [Suspect]
     Active Substance: RITUXIMAB
     Dosage: 5TH LINE TREATMENT, RITUXIMAB TOGETHER WITH LENALIDOMID AND DEXAMETHASONE, 5 CYCLES
     Route: 065
     Dates: start: 201904, end: 201909
  13. IFOSFAMIDE [Suspect]
     Active Substance: IFOSFAMIDE
     Indication: Diffuse large B-cell lymphoma
     Dosage: 2ND LINE TREATMENT, ACCORDING TO R-ICE REGIME, 1 CYCLE
     Route: 065
     Dates: start: 201812, end: 201901
  14. CYCLOPHOSPHAMIDE\DOXORUBICIN\PREDNISONE\VINCRISTINE [Suspect]
     Active Substance: CYCLOPHOSPHAMIDE\DOXORUBICIN\PREDNISONE\VINCRISTINE
     Indication: Diffuse large B-cell lymphoma
     Dosage: 1ST LINE TREATMENT, ACCORDING TO R-CHOP REGIME, 6 CYCLES
     Route: 065
     Dates: start: 201803, end: 201807
  15. CISPLATIN\CYTARABINE\DEXAMETHASONE [Suspect]
     Active Substance: CISPLATIN\CYTARABINE\DEXAMETHASONE
     Indication: Diffuse large B-cell lymphoma
     Dosage: 3RD LINE TREATMENT, ACCORDING TO R-DHAP REGIME, 2 CYCLES
     Route: 065
     Dates: start: 20190111, end: 20190201

REACTIONS (2)
  - Neuropathy peripheral [Unknown]
  - Fatigue [Unknown]
